FAERS Safety Report 5348801-X (Version None)
Quarter: 2007Q2

REPORT INFORMATION
  Report Type: 
  Country: None (occurrence: None)
  Receive Date: 20070607
  Receipt Date: 20070529
  Transmission Date: 20071010
  Serious: Yes (Other)
  Sender: FDA-Public Use
  Company Number: GB-JNJFOC-20070506186

PATIENT
  Sex: Female
  Weight: 75 kg

DRUGS (11)
  1. INFLIXIMAB [Suspect]
     Indication: RHEUMATOID ARTHRITIS
  2. METHOTREXATE SODIUM [Concomitant]
  3. PREDNISOLONE [Concomitant]
  4. CELECOXIB [Concomitant]
  5. CODEINE SUL TAB [Concomitant]
  6. FERROUS SULFATE TAB [Concomitant]
  7. FOLIC ACID [Concomitant]
  8. KLIOFEM [Concomitant]
  9. LANSOPRAZOLE [Concomitant]
  10. SENNA [Concomitant]
  11. TRAMADOL HCL [Concomitant]

REACTIONS (1)
  - MALIGNANT MELANOMA [None]
